FAERS Safety Report 5080356-X (Version None)
Quarter: 2006Q3

REPORT INFORMATION
  Report Type: 
  Country: None (occurrence: None)
  Receive Date: 20060814
  Receipt Date: 20060814
  Transmission Date: 20061208
  Serious: Yes (Other)
  Sender: FDA-Public Use
  Company Number: None

PATIENT
  Age: 47 Year
  Sex: Female
  Weight: 78.9259 kg

DRUGS (2)
  1. BONIVA [Suspect]
     Indication: FAMILIAL RISK FACTOR
     Dosage: SINGLE TABLET 1/MONTH PO
     Route: 048
     Dates: start: 20060601, end: 20060801
  2. BONIVA [Suspect]
     Indication: OSTEOPENIA
     Dosage: SINGLE TABLET 1/MONTH PO
     Route: 048
     Dates: start: 20060601, end: 20060801

REACTIONS (23)
  - ACTIVITIES OF DAILY LIVING IMPAIRED [None]
  - ARTHRALGIA [None]
  - ASTHENIA [None]
  - BACK PAIN [None]
  - BLOOD PRESSURE INCREASED [None]
  - BONE PAIN [None]
  - CHILLS [None]
  - COUGH [None]
  - CRYING [None]
  - DEPRESSION [None]
  - DIARRHOEA [None]
  - DRUG INEFFECTIVE [None]
  - DYSPEPSIA [None]
  - FATIGUE [None]
  - GASTROOESOPHAGEAL REFLUX DISEASE [None]
  - INSOMNIA [None]
  - MOVEMENT DISORDER [None]
  - MYALGIA [None]
  - PAIN [None]
  - PAIN IN EXTREMITY [None]
  - PYREXIA [None]
  - STOMACH DISCOMFORT [None]
  - SUICIDAL IDEATION [None]
